FAERS Safety Report 25702575 (Version 1)
Quarter: 2025Q3

REPORT INFORMATION
  Report Type: Spontaneous
  Country: US (occurrence: US)
  Receive Date: 20250819
  Receipt Date: 20250819
  Transmission Date: 20251021
  Serious: No
  Sender: REGENERON
  Company Number: US-REGENERON PHARMACEUTICALS, INC.-2025-069144

PATIENT
  Sex: Male

DRUGS (7)
  1. PRALUENT [Suspect]
     Active Substance: ALIROCUMAB
     Indication: Type IIa hyperlipidaemia
     Dosage: 75 MG, Q2W (EVERY 2 WEEKS); STRENGTH: UNKNOWN
     Route: 058
     Dates: start: 2021
  2. PRALUENT [Suspect]
     Active Substance: ALIROCUMAB
     Indication: Myocardial infarction
  3. PRALUENT [Suspect]
     Active Substance: ALIROCUMAB
     Indication: Cerebrovascular accident
  4. PRALUENT [Suspect]
     Active Substance: ALIROCUMAB
     Indication: Angina unstable
  5. ASPIRIN [Concomitant]
     Active Substance: ASPIRIN
     Indication: Product used for unknown indication
  6. BENICAR [Concomitant]
     Active Substance: OLMESARTAN MEDOXOMIL
     Indication: Product used for unknown indication
  7. NORVASC [Concomitant]
     Active Substance: AMLODIPINE BESYLATE
     Indication: Product used for unknown indication

REACTIONS (1)
  - Inappropriate schedule of product administration [Unknown]
